FAERS Safety Report 14110926 (Version 3)
Quarter: 2017Q4

REPORT INFORMATION
  Report Type: Report from Study
  Country: US (occurrence: BR)
  Receive Date: 20171020
  Receipt Date: 20171117
  Transmission Date: 20180321
  Serious: Yes (Death, Other)
  Sender: FDA-Public Use
  Company Number: US-SUNOVION-2017SUN004524

PATIENT
  Age: 68 Year
  Sex: Male
  Weight: 60 kg

DRUGS (1)
  1. INDACATEROL AND GLYCOPYRROLATE [Suspect]
     Active Substance: GLYCOPYRROLATE\INDACATEROL MALEATE
     Indication: EMPHYSEMA
     Dosage: 1 (GLYCOPYRRONIUM BROMIDE 50/ INDACATEROL 110), QD
     Route: 055
     Dates: start: 201707

REACTIONS (7)
  - Body surface area decreased [Unknown]
  - Cardiac failure [Fatal]
  - Acute kidney injury [Fatal]
  - Hypertension [Fatal]
  - Malaise [Unknown]
  - Cardiogenic shock [Fatal]
  - Pulmonary pain [Unknown]

NARRATIVE: CASE EVENT DATE: 20171014
